FAERS Safety Report 5118315-0 (Version None)
Quarter: 2006Q4

REPORT INFORMATION
  Report Type: 
  Country: None (occurrence: None)
  Receive Date: 20061002
  Receipt Date: 20060920
  Transmission Date: 20070319
  Serious: Yes (Hospitalization)
  Sender: FDA-Public Use
  Company Number: PHBS2006JP14745

PATIENT
  Age: 38 Year
  Sex: Male
  Weight: 73 kg

DRUGS (6)
  1. TEGRETOL [Suspect]
     Dosage: 400 MG/DAY
     Route: 048
  2. HIRNAMIN [Concomitant]
     Dosage: 125 MG/DAY
     Route: 048
  3. PROMETHAZINE HCL [Concomitant]
     Dosage: 50 MG/DAY
     Route: 048
  4. SEPAZON [Concomitant]
     Dosage: 2 MG/DAY
     Route: 048
  5. BENZALIN [Concomitant]
     Dosage: 10 MG/DAY
     Route: 048
  6. EURODIN [Concomitant]
     Dosage: 4 MG/DAY
     Route: 048

REACTIONS (2)
  - NEUROLEPTIC MALIGNANT SYNDROME [None]
  - RECTAL PERFORATION [None]
